FAERS Safety Report 6051368-4 (Version None)
Quarter: 2009Q1

REPORT INFORMATION
  Report Type: 
  Country: None (occurrence: None)
  Receive Date: 20090126
  Receipt Date: 20090114
  Transmission Date: 20090719
  Serious: Yes (Hospitalization)
  Sender: FDA-Public Use
  Company Number: FR-PFIZER INC-2009156790

PATIENT

DRUGS (18)
  1. CYTARABINE [Suspect]
     Route: 064
     Dates: start: 20080220, end: 20080330
  2. DEBRIDAT [Suspect]
     Route: 064
     Dates: start: 20080307, end: 20080308
  3. ATARAX [Suspect]
     Route: 064
     Dates: start: 20080306, end: 20080306
  4. CERUBIDINE [Suspect]
     Route: 064
     Dates: start: 20080220, end: 20080222
  5. TAZOCILLINE [Suspect]
     Route: 064
     Dates: start: 20080226, end: 20080310
  6. VANCOMYCIN [Suspect]
     Route: 064
     Dates: start: 20080227, end: 20080228
  7. PLITICAN [Suspect]
     Dosage: FREQUENCY: EVERY DAY
     Route: 064
     Dates: start: 20080328, end: 20080330
  8. SPASFON [Suspect]
     Route: 064
     Dates: start: 20080401, end: 20080405
  9. PRIMPERAN TAB [Suspect]
     Route: 064
     Dates: start: 20080220, end: 20080226
  10. TRAMADOL HCL [Suspect]
     Route: 064
     Dates: start: 20080227, end: 20080227
  11. PARACETAMOL [Suspect]
     Route: 064
     Dates: start: 20080303, end: 20080304
  12. ECONAZOLE NITRATE [Suspect]
     Route: 064
     Dates: start: 20080226, end: 20080303
  13. ACUPAN [Suspect]
     Route: 064
     Dates: start: 20080303, end: 20080310
  14. ALUMINUM HYDROXIDE AND MAGNESIUM TRISILICATE [Suspect]
     Route: 064
     Dates: start: 20080228, end: 20080307
  15. AMIKACIN [Suspect]
     Route: 064
     Dates: start: 20080303, end: 20080304
  16. TARGOCID [Suspect]
     Route: 064
     Dates: start: 20080304, end: 20080306
  17. LOPERAMIDE HYDROCHLORIDE [Suspect]
     Route: 064
     Dates: start: 20080307, end: 20080308
  18. TAVANIC [Suspect]
     Route: 064
     Dates: start: 20080328, end: 20080414

REACTIONS (10)
  - ANAEMIA [None]
  - ATELECTASIS [None]
  - DRUG EXPOSURE DURING PREGNANCY [None]
  - FOETAL ARRHYTHMIA [None]
  - FOETAL GROWTH RETARDATION [None]
  - PERIVENTRICULAR LEUKOMALACIA [None]
  - PREMATURE BABY [None]
  - RESPIRATORY DISTRESS [None]
  - STAPHYLOCOCCAL INFECTION [None]
  - STRIDOR [None]
